FAERS Safety Report 4636483-1 (Version None)
Quarter: 2005Q2

REPORT INFORMATION
  Report Type: 
  Country: None (occurrence: None)
  Receive Date: 20050414
  Receipt Date: 20050414
  Transmission Date: 20051028
  Serious: No
  Sender: FDA-Public Use
  Company Number: None

PATIENT
  Sex: Female
  Weight: 72 kg

DRUGS (1)
  1. GEMCITABINE [Suspect]
     Dosage: 1000 MG/M2 IV OVER 30 MIN Q WK X 7
     Route: 042
     Dates: start: 20041208

REACTIONS (2)
  - CARDIO-RESPIRATORY ARREST [None]
  - OEDEMA [None]
